FAERS Safety Report 23495190 (Version 2)
Quarter: 2024Q1

REPORT INFORMATION
  Report Type: Spontaneous
  Country: CN (occurrence: None)
  Receive Date: 20240207
  Receipt Date: 20240209
  Transmission Date: 20240410
  Serious: Yes (Hospitalization)
  Sender: FDA-Public Use
  Company Number: 2024A028043

PATIENT
  Age: 25892 Day
  Sex: Female
  Weight: 60 kg

DRUGS (2)
  1. FULVESTRANT [Suspect]
     Active Substance: FULVESTRANT
     Indication: Chemotherapy
     Route: 030
     Dates: start: 20230721, end: 20230821
  2. ABEMACICLIB [Suspect]
     Active Substance: ABEMACICLIB
     Indication: Chemotherapy
     Route: 048
     Dates: start: 20230721, end: 20230821

REACTIONS (4)
  - White blood cell count decreased [Recovering/Resolving]
  - Neutrophil count decreased [Recovering/Resolving]
  - Platelet count decreased [Recovering/Resolving]
  - Myelosuppression [Unknown]

NARRATIVE: CASE EVENT DATE: 20230822
